FAERS Safety Report 7252484-1 (Version None)
Quarter: 2011Q1

REPORT INFORMATION
  Report Type: 
  Country: None (occurrence: None)
  Receive Date: 20110129
  Receipt Date: 20100106
  Transmission Date: 20110831
  Serious: No
  Sender: FDA-Public Use
  Company Number: US-ABBOTT-10P-163-0617957-00

PATIENT
  Sex: Female
  Weight: 54.026 kg

DRUGS (5)
  1. HUMIRA [Suspect]
     Dosage: DAY 15
     Dates: start: 20091228
  2. HUMIRA [Suspect]
     Indication: CROHN'S DISEASE
     Dates: start: 20091214, end: 20091214
  3. PENTASA [Concomitant]
     Indication: PRODUCT USED FOR UNKNOWN INDICATION
  4. VITAMIN D [Concomitant]
     Indication: PRODUCT USED FOR UNKNOWN INDICATION
  5. ENTOCORT EC [Concomitant]
     Indication: PRODUCT USED FOR UNKNOWN INDICATION

REACTIONS (6)
  - FATIGUE [None]
  - DIARRHOEA [None]
  - ABDOMINAL PAIN UPPER [None]
  - ALOPECIA [None]
  - PRODUCTIVE COUGH [None]
  - NAUSEA [None]
